FAERS Safety Report 8537121-8 (Version None)
Quarter: 2012Q3

REPORT INFORMATION
  Report Type: 
  Country: None (occurrence: None)
  Receive Date: 20120725
  Receipt Date: 20120716
  Transmission Date: 20120928
  Serious: Yes (Hospitalization)
  Sender: FDA-Public Use
  Company Number: US-BAYER-2012-072204

PATIENT
  Age: 20 Year
  Sex: Female
  Weight: 102 kg

DRUGS (4)
  1. YASMIN [Suspect]
     Indication: CONTRACEPTION
  2. YAZ [Suspect]
  3. DROSPIRENONE AND ETHINYL ESTRADIOL [Suspect]
  4. ALBUTEROL [Concomitant]
     Dosage: UNK UNK, PRN

REACTIONS (1)
  - PULMONARY EMBOLISM [None]
